FAERS Safety Report 18392752 (Version 1)
Quarter: 2020Q4

REPORT INFORMATION
  Report Type: Report from Study
  Country: US (occurrence: US)
  Receive Date: 20201016
  Receipt Date: 20201016
  Transmission Date: 20210114
  Serious: Yes (Other)
  Sender: FDA-Public Use
  Company Number: US-PFIZER INC-2020397899

PATIENT

DRUGS (2)
  1. AMOXICILLIN SODIUM [Suspect]
     Active Substance: AMOXICILLIN SODIUM
     Dosage: 20 MG/ML (POWDER)
  2. BENZYLPENICILLIN POTASSIUM [Suspect]
     Active Substance: PENICILLIN G POTASSIUM
     Dosage: 10 MMOL/L

REACTIONS (3)
  - Drug hypersensitivity [Recovered/Resolved]
  - Skin reaction [Recovered/Resolved]
  - Lung disorder [Recovered/Resolved]
